FAERS Safety Report 6923813-0 (Version None)
Quarter: 2010Q3

REPORT INFORMATION
  Report Type: 
  Country: None (occurrence: None)
  Receive Date: 20100813
  Receipt Date: 20100804
  Transmission Date: 20110219
  Serious: Yes (Hospitalization)
  Sender: FDA-Public Use
  Company Number: US-JNJFOC-20100801652

PATIENT
  Age: 17 Year
  Sex: Male

DRUGS (1)
  1. INVEGA SUSTENNA [Suspect]
     Indication: PSYCHOTIC DISORDER
     Route: 030

REACTIONS (1)
  - PSYCHOTIC DISORDER [None]
